FAERS Safety Report 9081741 (Version 2)
Quarter: 2013Q2

REPORT INFORMATION
  Report Type: Spontaneous
  Country: DE (occurrence: DE)
  Receive Date: 20130131
  Receipt Date: 20130522
  Transmission Date: 20140414
  Serious: Yes (Death, Other)
  Sender: FDA-Public Use
  Company Number: DE-JNJFOC-20130109415

PATIENT
  Age: 9 Decade
  Sex: Female

DRUGS (1)
  1. HALDOL [Suspect]
     Indication: PRODUCT USED FOR UNKNOWN INDICATION
     Route: 065

REACTIONS (19)
  - Death [Fatal]
  - Overdose [Unknown]
  - Respiratory paralysis [Unknown]
  - Cerebrovascular accident [Unknown]
  - Arrhythmia [Unknown]
  - Dependence [Unknown]
  - Convulsion [Unknown]
  - Aphasia [Unknown]
  - Asocial behaviour [Unknown]
  - Altered state of consciousness [Unknown]
  - Muscle spasms [Unknown]
  - Pruritus [Unknown]
  - Balance disorder [Unknown]
  - Dyspnoea [Unknown]
  - Tremor [Unknown]
  - Slow speech [Unknown]
  - Dyskinesia [Unknown]
  - Myalgia [Unknown]
  - Erythema [Unknown]
